FAERS Safety Report 23190600 (Version 1)
Quarter: 2023Q4

REPORT INFORMATION
  Report Type: Spontaneous
  Country: AU (occurrence: AU)
  Receive Date: 20231116
  Receipt Date: 20231116
  Transmission Date: 20240109
  Serious: Yes (Other)
  Sender: FDA-Public Use
  Company Number: AU-AstraZeneca-2023-52376

PATIENT
  Sex: Female

DRUGS (2)
  1. SYNAGIS [Suspect]
     Active Substance: PALIVIZUMAB
     Indication: Product used for unknown indication
     Route: 030
  2. COMIRNATY (TOZINAMERAN) [Suspect]
     Active Substance: TOZINAMERAN
     Indication: Product used for unknown indication

REACTIONS (7)
  - Pneumonitis aspiration [Unknown]
  - Vomiting [Unknown]
  - Oxygen consumption increased [Unknown]
  - Dyspnoea [Unknown]
  - Hyperhidrosis [Unknown]
  - Concomitant disease aggravated [Unknown]
  - Lower respiratory tract infection [Unknown]
